FAERS Safety Report 4363195-4 (Version None)
Quarter: 2004Q2

REPORT INFORMATION
  Report Type: 
  Country: None (occurrence: None)
  Receive Date: 20040519
  Receipt Date: 20040511
  Transmission Date: 20050107
  Serious: Yes (Hospitalization)
  Sender: FDA-Public Use
  Company Number: 04P-062-0257468-00

PATIENT
  Age: 34 Year
  Sex: Male

DRUGS (5)
  1. KALETRA [Suspect]
     Indication: HIV INFECTION
     Dosage: 3 CAPSULE, 2 IN 1 D, PER ORAL
     Route: 048
     Dates: end: 20040415
  2. LAMIVUDINE [Concomitant]
  3. DIDANOSINE [Concomitant]
  4. ACETYLCYSTEINE [Concomitant]
  5. CODEINE [Concomitant]

REACTIONS (10)
  - ATRIOVENTRICULAR BLOCK SECOND DEGREE [None]
  - BUNDLE BRANCH BLOCK RIGHT [None]
  - HEAD INJURY [None]
  - INFLUENZA [None]
  - LACERATION [None]
  - SINUS BRADYCARDIA [None]
  - SINUSITIS [None]
  - SUPERINFECTION [None]
  - SYNCOPE [None]
  - UPPER RESPIRATORY TRACT INFECTION BACTERIAL [None]
